FAERS Safety Report 18867230 (Version 1)
Quarter: 2021Q1

REPORT INFORMATION
  Report Type: Spontaneous
  Country: US (occurrence: US)
  Receive Date: 20210209
  Receipt Date: 20210209
  Transmission Date: 20210420
  Serious: Yes (Life-Threatening, Hospitalization)
  Sender: FDA-Public Use
  Company Number: None

PATIENT
  Age: 66 Year
  Sex: Female
  Weight: 80.01 kg

DRUGS (13)
  1. PIQRAY [Suspect]
     Active Substance: ALPELISIB
     Indication: BREAST CANCER STAGE IV
     Route: 048
     Dates: start: 20201216, end: 20201228
  2. DORZOLAMIDE [Concomitant]
     Active Substance: DORZOLAMIDE
  3. VYZULTA [Concomitant]
     Active Substance: LATANOPROSTENE BUNOD
  4. TRAMADOL. [Concomitant]
     Active Substance: TRAMADOL
  5. XARELTO [Concomitant]
     Active Substance: RIVAROXABAN
  6. AMLODIPINE [Concomitant]
     Active Substance: AMLODIPINE BESYLATE
  7. CLARITIN [Concomitant]
     Active Substance: LORATADINE
  8. GABAPENTIN. [Concomitant]
     Active Substance: GABAPENTIN
  9. HYDROCHLOROTHIAZIDE. [Concomitant]
     Active Substance: HYDROCHLOROTHIAZIDE
  10. FASLODEX [Concomitant]
     Active Substance: FULVESTRANT
  11. BRIMONIDINE [Concomitant]
     Active Substance: BRIMONIDINE TARTRATE
  12. METHOCARBAMOL. [Concomitant]
     Active Substance: METHOCARBAMOL
  13. SENNA PLUS [Concomitant]
     Active Substance: DOCUSATE SODIUM\SENNOSIDES\SENNOSIDES A AND B

REACTIONS (2)
  - Pancreatitis [None]
  - Diabetic ketoacidosis [None]

NARRATIVE: CASE EVENT DATE: 20201228
